FAERS Safety Report 21799079 (Version 1)
Quarter: 2022Q4

REPORT INFORMATION
  Report Type: Spontaneous
  Country: DE (occurrence: DE)
  Receive Date: 20221230
  Receipt Date: 20221230
  Transmission Date: 20230113
  Serious: Yes (Other)
  Sender: FDA-Public Use
  Company Number: None

PATIENT
  Age: 86 Year
  Sex: Female
  Weight: 59 kg

DRUGS (1)
  1. TOCILIZUMAB [Suspect]
     Active Substance: TOCILIZUMAB
     Indication: Giant cell arteritis
     Route: 065
     Dates: start: 20220610, end: 20220928

REACTIONS (6)
  - Cholestasis [Recovering/Resolving]
  - Transaminases increased [Recovering/Resolving]
  - Alpha hydroxybutyrate dehydrogenase [Recovering/Resolving]
  - Headache [Recovering/Resolving]
  - Blood lactate dehydrogenase [Recovering/Resolving]
  - Nausea [Recovering/Resolving]

NARRATIVE: CASE EVENT DATE: 20220920
